FAERS Safety Report 7129974-5 (Version None)
Quarter: 2010Q4

REPORT INFORMATION
  Report Type: 
  Country: None (occurrence: None)
  Receive Date: 20101130
  Receipt Date: 20101111
  Transmission Date: 20110411
  Serious: Yes (Other)
  Sender: FDA-Public Use
  Company Number: GB-AMGEN-GBRCT2010005643

PATIENT

DRUGS (2)
  1. ETANERCEPT [Suspect]
     Indication: RHEUMATOID ARTHRITIS
     Dosage: UNK
     Dates: start: 20060621, end: 20060830
  2. METHOTREXATE [Concomitant]
     Dosage: UNK
     Dates: start: 20060307

REACTIONS (1)
  - MYELOPROLIFERATIVE DISORDER [None]
